FAERS Safety Report 20625696 (Version 1)
Quarter: 2022Q1

REPORT INFORMATION
  Report Type: Spontaneous
  Country: US (occurrence: None)
  Receive Date: 20220323
  Receipt Date: 20220323
  Transmission Date: 20220424
  Serious: No
  Sender: FDA-Public Use
  Company Number: US-ROCHE-2764631

PATIENT
  Age: 57 Year
  Sex: Male

DRUGS (2)
  1. ERIVEDGE [Suspect]
     Active Substance: VISMODEGIB
     Indication: Basal cell carcinoma metastatic
     Dosage: ONCE EVERY OTHER DAY
     Route: 048
     Dates: start: 202001, end: 202004
  2. ERIVEDGE [Suspect]
     Active Substance: VISMODEGIB
     Dosage: EVERY OTHER DAY
     Route: 048
     Dates: start: 202101

REACTIONS (1)
  - Muscle spasms [Not Recovered/Not Resolved]
